FAERS Safety Report 6692353-9 (Version None)
Quarter: 2010Q2

REPORT INFORMATION
  Report Type: 
  Country: None (occurrence: None)
  Receive Date: 20100422
  Receipt Date: 20100416
  Transmission Date: 20101027
  Serious: Yes (Other)
  Sender: FDA-Public Use
  Company Number: US-ASTRAZENECA-2010SE07634

PATIENT
  Age: 28060 Day
  Sex: Female
  Weight: 72.6 kg

DRUGS (2)
  1. SYMBICORT [Suspect]
     Indication: ASTHMA
     Dosage: 160 / 4.5 MCG BID
     Route: 055
     Dates: start: 20100101, end: 20100215
  2. VITAMINS [Concomitant]

REACTIONS (1)
  - VISION BLURRED [None]
